FAERS Safety Report 24107398 (Version 1)
Quarter: 2024Q3

REPORT INFORMATION
  Report Type: Spontaneous
  Country: CN (occurrence: CN)
  Receive Date: 20240718
  Receipt Date: 20240718
  Transmission Date: 20241016
  Serious: Yes (Hospitalization, Other)
  Sender: BEIGENE
  Company Number: CN-BEIGENE-BGN-2024-010840

PATIENT

DRUGS (3)
  1. TISLELIZUMAB [Suspect]
     Active Substance: TISLELIZUMAB
     Indication: Endometrial cancer
     Dosage: 200 MILLIGRAM
     Route: 041
     Dates: start: 20240627
  2. NEDAPLATIN [Suspect]
     Active Substance: NEDAPLATIN
     Indication: Endometrial cancer
     Dosage: 40 MILLIGRAM
     Route: 041
     Dates: start: 20240627
  3. EPIRUBICIN [Suspect]
     Active Substance: EPIRUBICIN
     Indication: Endometrial cancer
     Dosage: 150 MILLIGRAM
     Dates: start: 20240627

REACTIONS (1)
  - Myelosuppression [Not Recovered/Not Resolved]

NARRATIVE: CASE EVENT DATE: 20240707
